FAERS Safety Report 6040298-X (Version None)
Quarter: 2009Q1

REPORT INFORMATION
  Report Type: 
  Country: None (occurrence: None)
  Receive Date: 20090116
  Receipt Date: 20080208
  Transmission Date: 20090719
  Serious: Yes (Other)
  Sender: FDA-Public Use
  Company Number: US-BRISTOL-MYERS SQUIBB COMPANY-14070916

PATIENT
  Age: 47 Year
  Sex: Female
  Weight: 74 kg

DRUGS (7)
  1. ABILIFY [Suspect]
     Indication: BIPOLAR DISORDER
     Dosage: 1ST DOSE
     Dates: start: 20080208
  2. TRICOR [Concomitant]
  3. METOPROLOL TARTRATE [Concomitant]
  4. EFFEXOR [Concomitant]
  5. OMEPRAZOLE [Concomitant]
  6. LASIX [Concomitant]
  7. MUSCLE RELAXANT [Concomitant]

REACTIONS (4)
  - MIGRAINE [None]
  - PERSONALITY CHANGE [None]
  - PHARYNGEAL OEDEMA [None]
  - SWOLLEN TONGUE [None]
